FAERS Safety Report 18859459 (Version 1)
Quarter: 2021Q1

REPORT INFORMATION
  Report Type: Spontaneous
  Country: US (occurrence: US)
  Receive Date: 20210207
  Receipt Date: 20210207
  Transmission Date: 20210420
  Serious: Yes (Other)
  Sender: FDA-Public Use
  Company Number: None

PATIENT
  Age: 32 Year
  Sex: Female

DRUGS (2)
  1. LAMOTRIGINE. [Suspect]
     Active Substance: LAMOTRIGINE
     Indication: BIPOLAR DISORDER
     Route: 048
     Dates: start: 20201205, end: 20210206
  2. IAMOTN^GINE [Concomitant]
     Dates: start: 20201205, end: 20210206

REACTIONS (1)
  - Rash [None]

NARRATIVE: CASE EVENT DATE: 20210205
